FAERS Safety Report 8853088 (Version 1)
Quarter: 2012Q4

REPORT INFORMATION
  Report Type: 
  Country: GB (occurrence: GB)
  Receive Date: 20121022
  Receipt Date: 20121022
  Transmission Date: 20130627
  Serious: Yes (Disabling, Other)
  Sender: FDA-Public Use
  Company Number: GB-PFIZER INC-2012071782

PATIENT
  Age: 38 Year
  Sex: Male

DRUGS (1)
  1. ZOLOFT [Suspect]

REACTIONS (6)
  - Intentional drug misuse [Unknown]
  - Physical assault [Unknown]
  - Eye injury [Unknown]
  - Pain [Unknown]
  - Violence-related symptom [Unknown]
  - Family stress [Unknown]
